FAERS Safety Report 10021768 (Version 2)
Quarter: 2014Q2

REPORT INFORMATION
  Report Type: Report from Study
  Country: CA (occurrence: CA)
  Receive Date: 20140319
  Receipt Date: 20140513
  Transmission Date: 20141212
  Serious: Yes (Other)
  Sender: FDA-Public Use
  Company Number: CA-JNJFOC-20140310230

PATIENT
  Age: 49 Year
  Sex: Female
  Weight: 58.6 kg

DRUGS (9)
  1. REMICADE [Suspect]
     Indication: CROHN^S DISEASE
     Dosage: DOSE #3
     Route: 042
     Dates: start: 20140312
  2. REMICADE [Suspect]
     Indication: CROHN^S DISEASE
     Dosage: DOSE #3
     Route: 042
     Dates: start: 20140205
  3. REMICADE [Suspect]
     Indication: CROHN^S DISEASE
     Dosage: DOSE #3
     Route: 042
     Dates: start: 20140312
  4. REMICADE [Suspect]
     Indication: CROHN^S DISEASE
     Dosage: DOSE #3
     Route: 042
     Dates: start: 20140205
  5. TYLENOL [Concomitant]
     Indication: PREMEDICATION
     Dosage: TAPERING DOSE
     Route: 065
  6. GRAVOL [Concomitant]
     Indication: PREMEDICATION
     Dosage: TAPERING DOSE
     Route: 065
  7. ADVIL [Concomitant]
     Indication: PREMEDICATION
     Dosage: TAPERING DOSE
     Route: 065
  8. IMURAN [Concomitant]
     Route: 048
  9. PREDNISONE [Concomitant]
     Dosage: TAPERING DOSE
     Route: 065

REACTIONS (8)
  - Thyroid cyst [Unknown]
  - Intestinal cyst [Unknown]
  - Catheter site infection [Recovered/Resolved]
  - Vomiting [Recovered/Resolved]
  - Nausea [Recovered/Resolved]
  - Retching [Recovered/Resolved]
  - Headache [Recovered/Resolved]
  - Infusion related reaction [Recovered/Resolved]
